FAERS Safety Report 10818888 (Version 1)
Quarter: 2015Q1

REPORT INFORMATION
  Report Type: Report from Study
  Country: US (occurrence: US)
  Receive Date: 20150218
  Receipt Date: 20150218
  Transmission Date: 20150721
  Serious: No
  Sender: FDA-Public Use
  Company Number: US-ABBVIE-14K-163-1293659-00

PATIENT
  Sex: Female
  Weight: 111.23 kg

DRUGS (12)
  1. ATENOLOL. [Concomitant]
     Active Substance: ATENOLOL
     Indication: HYPERTENSION
  2. METFORMIN [Concomitant]
     Active Substance: METFORMIN HYDROCHLORIDE
     Indication: DIABETES MELLITUS
  3. GLIPIZIDE. [Concomitant]
     Active Substance: GLIPIZIDE
     Indication: DIABETES MELLITUS
  4. PRILOSEC [Concomitant]
     Active Substance: OMEPRAZOLE MAGNESIUM
     Indication: HIATUS HERNIA
  5. TRAMADOL [Concomitant]
     Active Substance: TRAMADOL
     Indication: PAIN
  6. ALBUTEROL. [Concomitant]
     Active Substance: ALBUTEROL
     Indication: CHRONIC OBSTRUCTIVE PULMONARY DISEASE
  7. AMOXICILLIN. [Suspect]
     Active Substance: AMOXICILLIN
     Indication: PARANASAL SINUS HYPERSECRETION
     Route: 065
     Dates: start: 201408
  8. LISINOPRIL. [Concomitant]
     Active Substance: LISINOPRIL
     Indication: HYPERTENSION
  9. ESTROVEN [Concomitant]
     Active Substance: DIETARY SUPPLEMENT
     Indication: HORMONE REPLACEMENT THERAPY
  10. HUMIRA [Suspect]
     Active Substance: ADALIMUMAB
     Indication: PSORIATIC ARTHROPATHY
  11. IBUPROFEN. [Concomitant]
     Active Substance: IBUPROFEN
     Indication: PSORIATIC ARTHROPATHY
     Dosage: THRICE A DAY
  12. HUMIRA [Suspect]
     Active Substance: ADALIMUMAB
     Indication: PSORIASIS
     Route: 065
     Dates: start: 201404

REACTIONS (6)
  - Paranasal sinus hypersecretion [Recovering/Resolving]
  - Headache [Not Recovered/Not Resolved]
  - Fungal infection [Recovered/Resolved]
  - Blood cholesterol increased [Unknown]
  - Blood glucose increased [Not Recovered/Not Resolved]
  - Blood pressure increased [Not Recovered/Not Resolved]

NARRATIVE: CASE EVENT DATE: 2014
